FAERS Safety Report 8047125-X (Version None)
Quarter: 2012Q1

REPORT INFORMATION
  Report Type: 
  Country: None (occurrence: None)
  Receive Date: 20120116
  Receipt Date: 20120106
  Transmission Date: 20120608
  Serious: No
  Sender: FDA-Public Use
  Company Number: US-JNJFOC-20120102388

PATIENT
  Age: 33 Year
  Sex: Female
  Weight: 54.89 kg

DRUGS (1)
  1. INVEGA SUSTENNA [Suspect]
     Indication: SCHIZOPHRENIA
     Route: 030
     Dates: start: 20100526

REACTIONS (4)
  - ACCIDENTAL EXPOSURE [None]
  - DEVICE LEAKAGE [None]
  - DRUG DOSE OMISSION [None]
  - NEEDLE ISSUE [None]
